FAERS Safety Report 10809477 (Version 1)
Quarter: 2015Q1

REPORT INFORMATION
  Report Type: Spontaneous
  Country: US (occurrence: None)
  Receive Date: 20150213
  Receipt Date: 20150213
  Transmission Date: 20150721
  Serious: No
  Sender: FDA-Public Use
  Company Number: None

PATIENT
  Age: 58 Year
  Sex: Male
  Weight: 63.5 kg

DRUGS (7)
  1. COQ10 [Concomitant]
     Active Substance: UBIDECARENONE
  2. B-50 [Concomitant]
  3. VITAMIN E [Concomitant]
     Active Substance: .ALPHA.-TOCOPHEROL
  4. CLINDAMYCIN [Suspect]
     Active Substance: CLINDAMYCIN\CLINDAMYCIN PHOSPHATE
     Indication: FURUNCLE
     Dosage: 150 MG, 2 CAPSULES, 4 TIMES DAILY, BY MOUTH
     Route: 048
     Dates: start: 20141216, end: 20141230
  5. POTASSIUM CITRATE. [Concomitant]
     Active Substance: POTASSIUM CITRATE
  6. MAGNESIUM COMPLEX [Concomitant]
  7. MULTI-VITAMIN [Concomitant]
     Active Substance: .ALPHA.-TOCOPHEROL ACETATE, DL-\ASCORBIC ACID\CYANOCOBALAMIN\FLUORIDE ION\FOLIC ACID\NIACIN\PYRIDOXINE\RIBOFLAVIN\THIAMINE\VITAMIN A\VITAMIN D

REACTIONS (2)
  - Rash pruritic [None]
  - Tooth discolouration [None]

NARRATIVE: CASE EVENT DATE: 20141224
